FAERS Safety Report 9512972 (Version 3)
Quarter: 2013Q3

REPORT INFORMATION
  Report Type: Spontaneous
  Country: US (occurrence: US)
  Receive Date: 20130910
  Receipt Date: 20130911
  Transmission Date: 20140515
  Serious: No
  Sender: FDA-Public Use
  Company Number: US-JNJFOC-20130903717

PATIENT
  Sex: Female

DRUGS (1)
  1. INVEGA SUSTENNA [Suspect]
     Indication: PRODUCT USED FOR UNKNOWN INDICATION
     Route: 030

REACTIONS (2)
  - Galactorrhoea [Unknown]
  - Blood prolactin abnormal [Unknown]
